FAERS Safety Report 10774278 (Version 3)
Quarter: 2015Q2

REPORT INFORMATION
  Report Type: Spontaneous
  Country: IT (occurrence: IT)
  Receive Date: 20150209
  Receipt Date: 20150629
  Transmission Date: 20150821
  Serious: Yes (Other)
  Sender: FDA-Public Use
  Company Number: IT-ROCHE-1534560

PATIENT
  Age: 66 Year
  Sex: Male
  Weight: 67 kg

DRUGS (5)
  1. IRINOTECAN [Concomitant]
     Active Substance: IRINOTECAN
     Indication: COLORECTAL CANCER
     Dosage: 20MG/ML CONCENTRATE FOR SOLUTION FOR INFUSION
     Route: 042
     Dates: start: 20140714, end: 20140714
  2. FLUOROURACIL. [Concomitant]
     Active Substance: FLUOROURACIL
     Dosage: 5MG/100ML SOLUTION FOR INFUSION
     Route: 042
     Dates: start: 20140714, end: 20140715
  3. IRINOTECAN [Concomitant]
     Active Substance: IRINOTECAN
     Dosage: 20MG/ML CONCENTRATE FOR SOLUTION FOR INFUSION
     Route: 042
     Dates: start: 20140714, end: 20140714
  4. LEVOFOLENE [Concomitant]
     Active Substance: LEVOLEUCOVORIN CALCIUM
     Indication: COLORECTAL CANCER
     Dosage: 25MG POWDER FOR SOLUTION FOR INJECTION
     Route: 042
     Dates: start: 20140714, end: 20140715
  5. AVASTIN [Suspect]
     Active Substance: BEVACIZUMAB
     Indication: COLORECTAL CANCER
     Dosage: 1VIAL WITH 100ML CONCENTRATION SOLUTION FOR INFUSION
     Route: 042
     Dates: start: 20140702, end: 20140716

REACTIONS (2)
  - Papillary muscle haemorrhage [Recovered/Resolved]
  - Retinal haemorrhage [Recovered/Resolved]

NARRATIVE: CASE EVENT DATE: 20140728
